FAERS Safety Report 19213267 (Version 2)
Quarter: 2021Q2

REPORT INFORMATION
  Report Type: Report from Study
  Country: US (occurrence: US)
  Receive Date: 20210504
  Receipt Date: 20210505
  Transmission Date: 20210717
  Serious: Yes (Hospitalization)
  Sender: FDA-Public Use
  Company Number: US-TAKEDA-2020TUS048597

PATIENT
  Sex: Male

DRUGS (8)
  1. TEDUGLUTIDE [Suspect]
     Active Substance: TEDUGLUTIDE
     Dosage: 1.3 MILLIGRAM, QD
     Route: 058
     Dates: start: 20200129
  2. TEDUGLUTIDE [Suspect]
     Active Substance: TEDUGLUTIDE
     Dosage: 1.3 MILLIGRAM, QD
     Route: 058
     Dates: start: 20200129
  3. TEDUGLUTIDE [Suspect]
     Active Substance: TEDUGLUTIDE
     Dosage: 1.3 MILLIGRAM, QD
     Route: 058
     Dates: start: 20200129
  4. TEDUGLUTIDE [Suspect]
     Active Substance: TEDUGLUTIDE
     Indication: GASTROSCHISIS
     Dosage: 1.5 MILLIGRAM, QD
     Route: 058
     Dates: start: 20200128
  5. TEDUGLUTIDE [Suspect]
     Active Substance: TEDUGLUTIDE
     Indication: GASTROSCHISIS
     Dosage: 1.5 MILLIGRAM, QD
     Route: 058
     Dates: start: 20200128
  6. TEDUGLUTIDE [Suspect]
     Active Substance: TEDUGLUTIDE
     Dosage: 1.3 MILLIGRAM, QD
     Route: 058
     Dates: start: 20200129
  7. TEDUGLUTIDE [Suspect]
     Active Substance: TEDUGLUTIDE
     Indication: GASTROSCHISIS
     Dosage: 1.5 MILLIGRAM, QD
     Route: 058
     Dates: start: 20200128
  8. TEDUGLUTIDE [Suspect]
     Active Substance: TEDUGLUTIDE
     Indication: GASTROSCHISIS
     Dosage: 1.5 MILLIGRAM, QD
     Route: 058
     Dates: start: 20200128

REACTIONS (3)
  - Decreased appetite [Unknown]
  - Hospitalisation [Unknown]
  - Off label use [Unknown]
